FAERS Safety Report 20144523 (Version 1)
Quarter: 2021Q4

REPORT INFORMATION
  Report Type: Spontaneous
  Country: US (occurrence: None)
  Receive Date: 20211202
  Receipt Date: 20211202
  Transmission Date: 20220303
  Serious: Yes (Death)
  Sender: FDA-Public Use
  Company Number: None

PATIENT
  Age: 97 Year
  Sex: Female

DRUGS (9)
  1. PROLIA [Suspect]
     Active Substance: DENOSUMAB
     Indication: Osteoporosis
     Dosage: OTHER QUANTITY : 60/1 MG/ML;?OTHER FREQUENCY : EVERY 6 MO;?
     Route: 058
     Dates: end: 20210926
  2. ALBUTEROL [Concomitant]
     Active Substance: ALBUTEROL
  3. LASIX [Concomitant]
     Active Substance: FUROSEMIDE
  4. METOPROLOL TARTRATE [Concomitant]
     Active Substance: METOPROLOL TARTRATE
  5. OCUVITE [Concomitant]
     Active Substance: VITAMINS
  6. OMEPRAZOLE [Concomitant]
     Active Substance: OMEPRAZOLE
  7. REMERON [Concomitant]
     Active Substance: MIRTAZAPINE
  8. SUCRALFATE [Concomitant]
     Active Substance: SUCRALFATE
  9. SYNTHROID [Concomitant]
     Active Substance: LEVOTHYROXINE SODIUM

REACTIONS (1)
  - Death [None]

NARRATIVE: CASE EVENT DATE: 20210926
